FAERS Safety Report 7222657-2 (Version None)
Quarter: 2011Q1

REPORT INFORMATION
  Report Type: 
  Country: None (occurrence: None)
  Receive Date: 20110112
  Receipt Date: 20110104
  Transmission Date: 20110831
  Serious: Yes (Other)
  Sender: FDA-Public Use
  Company Number: US-PFIZER INC-2011002841

PATIENT
  Age: 64 Year
  Sex: Female

DRUGS (2)
  1. ADVIL CONGESTION RELIEF [Suspect]
     Dosage: 1TABLET ONCE DAILY
  2. PRILOSEC [Concomitant]
     Dosage: UNK

REACTIONS (2)
  - DYSPNOEA [None]
  - CHEST PAIN [None]
